FAERS Safety Report 9451161 (Version 2)
Quarter: 2013Q3

REPORT INFORMATION
  Report Type: Report from Study
  Country: DE (occurrence: DE)
  Receive Date: 20130809
  Receipt Date: 20130913
  Transmission Date: 20140515
  Serious: Yes (Hospitalization, Other)
  Sender: FDA-Public Use
  Company Number: DE-TEVA-413208GER

PATIENT
  Sex: Female
  Weight: 58 kg

DRUGS (1)
  1. COPAXONE [Suspect]
     Indication: MULTIPLE SCLEROSIS
     Dosage: 20 MILLIGRAM DAILY;
     Route: 058
     Dates: start: 20080820

REACTIONS (2)
  - Back pain [Not Recovered/Not Resolved]
  - Osteochondrosis [Not Recovered/Not Resolved]
